FAERS Safety Report 11576634 (Version 3)
Quarter: 2018Q2

REPORT INFORMATION
  Report Type: Spontaneous
  Country: US (occurrence: US)
  Receive Date: 20150930
  Receipt Date: 20180412
  Transmission Date: 20180711
  Serious: Yes (Other)
  Sender: FDA-Public Use
  Company Number: US-SA-2015SA145806

PATIENT
  Age: 26 Year
  Sex: Male

DRUGS (5)
  1. PAROXETINE HYDROCHLORIDE. [Suspect]
     Active Substance: PAROXETINE HYDROCHLORIDE
     Route: 048
  2. HALOPERIDOL. [Suspect]
     Active Substance: HALOPERIDOL
     Route: 048
  3. BENZATROPINE [Suspect]
     Active Substance: BENZTROPINE
     Route: 048
  4. DIPHENHYDRAMINE. [Suspect]
     Active Substance: DIPHENHYDRAMINE
     Route: 048
  5. ARIPIPRAZOLE. [Suspect]
     Active Substance: ARIPIPRAZOLE
     Route: 048

REACTIONS (3)
  - Intentional product misuse [Unknown]
  - Intentional self-injury [Unknown]
  - Aspartate aminotransferase increased [Unknown]
